FAERS Safety Report 8263654-8 (Version None)
Quarter: 2012Q2

REPORT INFORMATION
  Report Type: 
  Country: None (occurrence: None)
  Receive Date: 20120405
  Receipt Date: 20120403
  Transmission Date: 20120825
  Serious: Yes (Death, Other)
  Sender: FDA-Public Use
  Company Number: GB-B.I. PHARMACEUTICALS,INC./RIDGEFIELD-2012-UK-00403UK

PATIENT
  Sex: Male

DRUGS (2)
  1. PRADAXA [Suspect]
  2. ENOXAPARIN [Suspect]
     Indication: THROMBOSIS PROPHYLAXIS

REACTIONS (3)
  - MYOCARDIAL ISCHAEMIA [None]
  - RENAL IMPAIRMENT [None]
  - GASTROINTESTINAL HAEMORRHAGE [None]
